FAERS Safety Report 7797711-7 (Version None)
Quarter: 2011Q4

REPORT INFORMATION
  Report Type: 
  Country: None (occurrence: None)
  Receive Date: 20111005
  Receipt Date: 20110929
  Transmission Date: 20120403
  Serious: Yes (Other)
  Sender: FDA-Public Use
  Company Number: PHHY2011CA85767

PATIENT
  Sex: Female

DRUGS (3)
  1. VITAMIN D [Concomitant]
  2. ZOLEDRONOC ACID [Suspect]
     Dosage: UNK
     Route: 042
     Dates: start: 20101124
  3. CALCIUM CARBONATE [Concomitant]

REACTIONS (6)
  - VOMITING [None]
  - ASTHENIA [None]
  - MYALGIA [None]
  - DIZZINESS [None]
  - MOVEMENT DISORDER [None]
  - PYREXIA [None]
